FAERS Safety Report 8320739-5 (Version None)
Quarter: 2012Q2

REPORT INFORMATION
  Report Type: 
  Country: None (occurrence: None)
  Receive Date: 20120430
  Receipt Date: 20120418
  Transmission Date: 20120825
  Serious: Yes (Hospitalization, Other)
  Sender: FDA-Public Use
  Company Number: US-ELI_LILLY_AND_COMPANY-US201105002250

PATIENT
  Sex: Female

DRUGS (17)
  1. SYNTHROID [Concomitant]
     Dosage: 50 UG, QD
  2. TOPROL-XL [Concomitant]
     Dosage: 50 MG, BID
  3. COUMADIN [Concomitant]
     Dosage: 2.5 MG, UNK
  4. AXID [Concomitant]
     Indication: DYSPEPSIA
     Dosage: 30 MG, EACH EVENING
  5. COZAAR [Concomitant]
     Dosage: 50 MG, QD
  6. VITAMIN D [Concomitant]
     Dosage: 2000 IU, QD
  7. FORTEO [Suspect]
     Dosage: 20 UG, QD
     Route: 065
  8. FORTEO [Suspect]
     Dosage: 20 UG, QD
  9. NORVASC [Concomitant]
     Dosage: 2.5 MG, QD
  10. FORTEO [Suspect]
     Indication: OSTEOPOROSIS
     Dosage: 20 UG, QD
     Route: 065
     Dates: start: 20100301
  11. CITRACAL PLUS [Concomitant]
     Dosage: UNK, QD
  12. LIDODERM [Concomitant]
     Dosage: UNK, PRN
  13. LASIX [Concomitant]
     Dosage: 40 MG, QD
  14. MULTAQ [Concomitant]
     Dosage: 400 MG, BID
  15. TYLENOL                                 /SCH/ [Concomitant]
     Dosage: UNK, PRN
  16. MIRALAX [Concomitant]
     Indication: GASTRIC DISORDER
     Dosage: UNK, QD
  17. SIMVASTATIN [Concomitant]
     Dosage: 10 MG, QD

REACTIONS (7)
  - ARTHRITIS [None]
  - HEART RATE DECREASED [None]
  - PAIN [None]
  - CARDIAC PACEMAKER INSERTION [None]
  - BONE DENSITY DECREASED [None]
  - ILL-DEFINED DISORDER [None]
  - GINGIVAL DISORDER [None]
